FAERS Safety Report 12842987 (Version 1)
Quarter: 2016Q4

REPORT INFORMATION
  Report Type: Spontaneous
  Country: US (occurrence: US)
  Receive Date: 20161012
  Receipt Date: 20161012
  Transmission Date: 20170207
  Serious: No
  Sender: FDA-Public Use
  Company Number: None

PATIENT
  Age: 33 Year
  Sex: Male

DRUGS (1)
  1. BUPRENORPHINE. [Suspect]
     Active Substance: BUPRENORPHINE
     Indication: DRUG ABUSE
     Route: 060
     Dates: start: 20160916

REACTIONS (3)
  - Nausea [None]
  - Vomiting [None]
  - Product substitution issue [None]

NARRATIVE: CASE EVENT DATE: 20160916
